FAERS Safety Report 14416631 (Version 1)
Quarter: 2018Q1

REPORT INFORMATION
  Report Type: Spontaneous
  Country: FR (occurrence: FR)
  Receive Date: 20180122
  Receipt Date: 20180122
  Transmission Date: 20180509
  Serious: Yes (Other)
  Sender: FDA-Public Use
  Company Number: FR-MERCK KGAA-2040474

PATIENT
  Age: 23 Year
  Sex: Female
  Weight: 45 kg

DRUGS (1)
  1. NOVOTHYROX [Suspect]
     Active Substance: LEVOTHYROXINE SODIUM
     Indication: HYPOTHYROIDISM
     Route: 048
     Dates: start: 2017, end: 20171208

REACTIONS (29)
  - Insomnia [Recovered/Resolved]
  - Blood thyroid stimulating hormone normal [Recovered/Resolved]
  - Feeling drunk [Unknown]
  - Asthenia [Unknown]
  - Muscle spasms [Unknown]
  - Nausea [Unknown]
  - Lacrimation increased [Not Recovered/Not Resolved]
  - Decreased appetite [Unknown]
  - Temporomandibular joint syndrome [Unknown]
  - Fatigue [Recovered/Resolved]
  - Anxiety [Recovered/Resolved]
  - Abdominal distension [Unknown]
  - Photophobia [Not Recovered/Not Resolved]
  - Vertigo [Recovered/Resolved]
  - Chest discomfort [Not Recovered/Not Resolved]
  - Neck pain [Not Recovered/Not Resolved]
  - Eye pain [Not Recovered/Not Resolved]
  - Gastrooesophageal reflux disease [Unknown]
  - Depression [Recovered/Resolved]
  - Dry eye [Not Recovered/Not Resolved]
  - Hypotension [Unknown]
  - Tinnitus [Recovered/Resolved]
  - Head discomfort [Unknown]
  - Derealisation [Unknown]
  - Disturbance in attention [Unknown]
  - Dyspnoea [Not Recovered/Not Resolved]
  - Amnesia [Unknown]
  - Abdominal pain upper [Unknown]
  - Occipital neuralgia [Unknown]

NARRATIVE: CASE EVENT DATE: 201706
